FAERS Safety Report 9735326 (Version 3)
Quarter: 2014Q3

REPORT INFORMATION
  Report Type: Spontaneous
  Country: JP (occurrence: JP)
  Receive Date: 20131206
  Receipt Date: 20140919
  Transmission Date: 20150326
  Serious: Yes (Disabling, Other)
  Sender: FDA-Public Use
  Company Number: JP-BAUSCH-BL-2013-006772

PATIENT
  Age: 42 Year
  Sex: Female

DRUGS (3)
  1. BRONUCK OPHTHALMIC SOLUTION 0.1% [Suspect]
     Active Substance: BROMFENAC SODIUM
     Indication: EYE PRURITUS
     Route: 047
     Dates: start: 20120719, end: 20120807
  2. PATANOL [Concomitant]
     Active Substance: OLOPATADINE HYDROCHLORIDE
     Indication: EYE PRURITUS
     Route: 047
  3. HYALEIN [Concomitant]
     Active Substance: HYALURONATE SODIUM
     Indication: PRODUCT USED FOR UNKNOWN INDICATION
     Route: 047

REACTIONS (4)
  - Corneal perforation [Recovered/Resolved with Sequelae]
  - Corneal erosion [Recovered/Resolved with Sequelae]
  - Off label use [Unknown]
  - Ulcerative keratitis [Recovering/Resolving]

NARRATIVE: CASE EVENT DATE: 20120719
